FAERS Safety Report 6635486-5 (Version None)
Quarter: 2010Q1

REPORT INFORMATION
  Report Type: 
  Country: None (occurrence: None)
  Receive Date: 20100315
  Receipt Date: 20090508
  Transmission Date: 20100710
  Serious: Yes (Hospitalization)
  Sender: FDA-Public Use
  Company Number: US-ABBOTT-09P-163-0572644-00

PATIENT
  Sex: Male
  Weight: 95.34 kg

DRUGS (5)
  1. DEPAKOTE [Suspect]
     Indication: DEPRESSION
     Dosage: 5 TABS QHS
     Route: 048
  2. ZYPREXA [Concomitant]
     Indication: DEPRESSION
     Dosage: QHS
     Route: 048
  3. ZANTAC [Concomitant]
     Indication: GASTRIC DISORDER
  4. BLOOD PRESSURE MEDICATION [Concomitant]
     Indication: HYPERTENSION
  5. ASPIRIN [Concomitant]
     Indication: DRUG USE FOR UNKNOWN INDICATION
     Route: 048

REACTIONS (5)
  - DEPRESSION [None]
  - DIABETES MELLITUS [None]
  - MUSCLE TIGHTNESS [None]
  - SOMNOLENCE [None]
  - WEIGHT INCREASED [None]
